FAERS Safety Report 24120149 (Version 2)
Quarter: 2024Q3

REPORT INFORMATION
  Report Type: Spontaneous
  Country: KR (occurrence: KR)
  Receive Date: 20240722
  Receipt Date: 20240728
  Transmission Date: 20241016
  Serious: Yes (Other)
  Sender: EISAI
  Company Number: KR-Eisai-EC-2024-169885

PATIENT
  Age: 73 Year
  Sex: Male

DRUGS (1)
  1. LENVIMA [Suspect]
     Active Substance: LENVATINIB
     Indication: Hepatocellular carcinoma
     Dosage: DOSE AND FREQUENCY UNKNOWN
     Route: 048
     Dates: start: 2013, end: 202405

REACTIONS (1)
  - Malignant neoplasm progression [Recovering/Resolving]

NARRATIVE: CASE EVENT DATE: 20240701
